FAERS Safety Report 24261140 (Version 1)
Quarter: 2024Q3

REPORT INFORMATION
  Report Type: Report from Study
  Country: US (occurrence: US)
  Receive Date: 20240829
  Receipt Date: 20240829
  Transmission Date: 20241017
  Serious: Yes (Other)
  Sender: ROCHE
  Company Number: US-ROCHE-10000061139

PATIENT
  Age: 89 Year
  Sex: Female

DRUGS (6)
  1. ACTEMRA [Suspect]
     Active Substance: TOCILIZUMAB
     Indication: Gastrooesophageal reflux disease
     Dosage: INJECT 162MG SUBCUTANEOUSLY EVERY 14 DAY(S)
     Route: 058
  2. ACTEMRA [Suspect]
     Active Substance: TOCILIZUMAB
     Indication: Hyperlipidaemia
  3. ACTEMRA [Suspect]
     Active Substance: TOCILIZUMAB
     Indication: Glaucoma
  4. ACTEMRA [Suspect]
     Active Substance: TOCILIZUMAB
     Indication: Essential hypertension
  5. ACTEMRA [Suspect]
     Active Substance: TOCILIZUMAB
     Indication: Hypertension
  6. ACTEMRA [Suspect]
     Active Substance: TOCILIZUMAB
     Indication: Ocular hypertension

REACTIONS (5)
  - Road traffic accident [Unknown]
  - Pneumonia [Unknown]
  - Sepsis [Unknown]
  - Rib fracture [Unknown]
  - Cardiac disorder [Unknown]
